FAERS Safety Report 26025551 (Version 2)
Quarter: 2025Q4

REPORT INFORMATION
  Report Type: Spontaneous
  Country: EU (occurrence: EU)
  Receive Date: 20251111
  Receipt Date: 20251113
  Transmission Date: 20260118
  Serious: Yes (Other)
  Sender: NOVARTIS
  Company Number: EU-002147023-NVSC2025FR171260

PATIENT
  Age: 92 Year
  Sex: Male

DRUGS (4)
  1. ENTRESTO [Suspect]
     Active Substance: SACUBITRIL\VALSARTAN
     Indication: Brain natriuretic peptide increased
     Dosage: 1 DOSAGE FORM, BID (49MG/51/MG) (1 TABLET EVERY MORNING AND EVERY EVENING)
     Route: 065
     Dates: start: 20251023
  2. DAPAGLIFLOZIN [Concomitant]
     Active Substance: DAPAGLIFLOZIN
     Indication: Brain natriuretic peptide increased
     Dosage: UNK UNK, QD (1X DAILY)
     Route: 065
  3. ASPIRIN [Concomitant]
     Active Substance: ASPIRIN
     Indication: Cardiac disorder
     Dosage: UNK
     Route: 065
  4. PREGABALIN [Concomitant]
     Active Substance: PREGABALIN
     Indication: Neuralgia
     Dosage: UNK
     Route: 065
     Dates: start: 202510

REACTIONS (2)
  - Haemorrhage urinary tract [Unknown]
  - Haematuria [Unknown]
